FAERS Safety Report 12033476 (Version 1)
Quarter: 2016Q1

REPORT INFORMATION
  Report Type: Report from Study
  Country: US (occurrence: US)
  Receive Date: 20160207
  Receipt Date: 20160207
  Transmission Date: 20160526
  Serious: No
  Sender: FDA-Public Use
  Company Number: US-ABBVIE-15K-163-1516352-00

PATIENT
  Age: 56 Year
  Sex: Female

DRUGS (1)
  1. HUMIRA [Suspect]
     Active Substance: ADALIMUMAB
     Indication: PSORIASIS
     Route: 058
     Dates: start: 20150812

REACTIONS (7)
  - Anhedonia [Unknown]
  - Frustration tolerance decreased [Unknown]
  - Skin irritation [Unknown]
  - Pain [Unknown]
  - Pruritus [Unknown]
  - Anger [Unknown]
  - Device issue [Unknown]

NARRATIVE: CASE EVENT DATE: 2015
